FAERS Safety Report 12988670 (Version 1)
Quarter: 2016Q4

REPORT INFORMATION
  Report Type: Spontaneous
  Country: US (occurrence: US)
  Receive Date: 20161130
  Receipt Date: 20161130
  Transmission Date: 20170207
  Serious: No
  Sender: FDA-Public Use
  Company Number: US-ASTRAZENECA-2016SF13039

PATIENT
  Sex: Female

DRUGS (2)
  1. LYNPARZA [Suspect]
     Active Substance: OLAPARIB
     Indication: BRCA2 GENE MUTATION ASSAY
     Route: 048
  2. LYNPARZA [Suspect]
     Active Substance: OLAPARIB
     Indication: BRCA2 GENE MUTATION ASSAY
     Route: 048
     Dates: start: 2016

REACTIONS (8)
  - Carbohydrate antigen 125 increased [Unknown]
  - Nightmare [Unknown]
  - Depression [Unknown]
  - Nausea [Unknown]
  - Renal impairment [Unknown]
  - Abdominal pain [Unknown]
  - Fatigue [Unknown]
  - Anaemia [Unknown]
